FAERS Safety Report 8115830-2 (Version None)
Quarter: 2012Q1

REPORT INFORMATION
  Report Type: 
  Country: None (occurrence: None)
  Receive Date: 20120206
  Receipt Date: 20120201
  Transmission Date: 20120608
  Serious: Yes (Death, Hospitalization)
  Sender: FDA-Public Use
  Company Number: DE-ELI_LILLY_AND_COMPANY-DE201101004588

PATIENT
  Sex: Male
  Weight: 71 kg

DRUGS (11)
  1. FENISTIL [Concomitant]
     Indication: PRURITUS
     Dates: start: 20101210
  2. IBUPROFEN [Concomitant]
     Indication: PAIN
     Dates: start: 20101001
  3. PEMETREXED [Suspect]
     Indication: NON-SMALL CELL LUNG CANCER STAGE IV
     Dosage: 950 MG, OTHER
     Dates: start: 20101117
  4. LEVOTHYROXINE SODIUM [Concomitant]
     Indication: HYPOTHYROIDISM
  5. ZOMETA [Concomitant]
     Indication: METASTASES TO BONE
     Dates: start: 20101105
  6. NECITUMUMAB (11F8) (LY3012211) [Suspect]
     Indication: NON-SMALL CELL LUNG CANCER STAGE IV
     Dosage: 800 MG, OTHER
     Dates: start: 20101117
  7. PANTOPRAZOLE [Concomitant]
     Indication: PROPHYLAXIS
     Dosage: UNK, UNK
  8. VITAMIN B-12 [Concomitant]
     Indication: PROPHYLAXIS
     Dates: start: 20101101
  9. CISPLATIN [Suspect]
     Indication: NON-SMALL CELL LUNG CANCER STAGE IV
     Dosage: 143 MG, OTHER
     Dates: start: 20101117
  10. ALLOPURINOL [Concomitant]
     Indication: HYPERURICAEMIA
  11. FOLSAN [Concomitant]
     Indication: PROPHYLAXIS
     Dates: start: 20101101

REACTIONS (3)
  - HERPES OESOPHAGITIS [None]
  - PNEUMONIA [None]
  - NEOPLASM PROGRESSION [None]
